FAERS Safety Report 9300409 (Version 1)
Quarter: 2013Q1

REPORT INFORMATION
  Report Type: Spontaneous
  Country: US (occurrence: None)
  Receive Date: 20130104
  Receipt Date: 20130104
  Transmission Date: 20140127
  Serious: Yes (Other)
  Sender: FDA-Public Use
  Company Number: 2012P10000702

PATIENT
  Age: 54 Year
  Sex: Male
  Weight: 96.16 kg

DRUGS (8)
  1. PREDNISONE TABLETS, 10MG [Suspect]
     Indication: OTORRHOEA
     Route: 048
     Dates: start: 20111213, end: 20111214
  2. ALLEGRA [Concomitant]
  3. ENALAPRIL [Concomitant]
  4. THYROGEN [Concomitant]
  5. CYTOMEL [Concomitant]
  6. BABY ASPIRIN [Concomitant]
  7. ASTEPRO [Concomitant]
  8. NASONEX [Concomitant]

REACTIONS (1)
  - Hypersensitivity [None]
